FAERS Safety Report 18198206 (Version 2)
Quarter: 2020Q3

REPORT INFORMATION
  Report Type: Spontaneous
  Country: PT (occurrence: PT)
  Receive Date: 20200826
  Receipt Date: 20200929
  Transmission Date: 20201103
  Serious: Yes (Other)
  Sender: FDA-Public Use
  Company Number: PT-MYLANLABS-2020M1073380

PATIENT
  Age: 75 Year
  Sex: Male

DRUGS (3)
  1. ESCITALOPRAM MYLAN 10 MG FILMTABLETTEN [Suspect]
     Active Substance: ESCITALOPRAM OXALATE
     Indication: DEPRESSION
     Dosage: UNK, QD (2 TABLETS PER DAY) (QUARTER OF A TABLET AT BREAKFAST AND A QUARTER OF A TABLET AT DINNER)
     Route: 048
     Dates: start: 202002, end: 202003
  2. ESCITALOPRAM MYLAN 10 MG FILMTABLETTEN [Suspect]
     Active Substance: ESCITALOPRAM OXALATE
     Dosage: UNK (1 TABLET PER DAY) (HALF A TABLET AT BREAKFAST AND HALF A TABLET AT DINNER)
     Route: 048
     Dates: start: 202004
  3. ESOMEPRAZOLE. [Concomitant]
     Active Substance: ESOMEPRAZOLE MAGNESIUM
     Indication: GASTROINTESTINAL DISORDER PROPHYLAXIS
     Dosage: 1 DOSAGE FORM

REACTIONS (4)
  - Anaemia [Unknown]
  - Dizziness [Recovered/Resolved]
  - Fatigue [Recovering/Resolving]
  - Haematochezia [Unknown]

NARRATIVE: CASE EVENT DATE: 202008
